FAERS Safety Report 14277679 (Version 1)
Quarter: 2017Q4

REPORT INFORMATION
  Report Type: Spontaneous
  Country: US (occurrence: US)
  Receive Date: 20171212
  Receipt Date: 20171212
  Transmission Date: 20180321
  Serious: Yes (Death, Other)
  Sender: FDA-Public Use
  Company Number: US-BRISTOL-MYERS SQUIBB COMPANY-BMS-2017-110508

PATIENT
  Sex: Male

DRUGS (1)
  1. ELIQUIS [Suspect]
     Active Substance: APIXABAN
     Indication: HEART DISEASE CONGENITAL
     Dosage: 5 MG, BID
     Route: 048

REACTIONS (3)
  - Urosepsis [Fatal]
  - Off label use [Unknown]
  - Chronic obstructive pulmonary disease [Fatal]
